FAERS Safety Report 17604176 (Version 1)
Quarter: 2020Q1

REPORT INFORMATION
  Report Type: Spontaneous
  Country: US (occurrence: US)
  Receive Date: 20200328
  Receipt Date: 20200328
  Transmission Date: 20200409
  Serious: Yes (Other)
  Sender: FDA-Public Use
  Company Number: None

PATIENT
  Age: 62 Year
  Sex: Female

DRUGS (2)
  1. PROCRIT [Suspect]
     Active Substance: ERYTHROPOIETIN
     Indication: BREAST CANCER FEMALE
     Dosage: ?          OTHER STRENGTH:20000 UNIT/ML;OTHER FREQUENCY:2-4 WEEKS AS DIREC;?
     Route: 058
     Dates: start: 20200131
  2. XGEVA [Suspect]
     Active Substance: DENOSUMAB
     Indication: BREAST CANCER FEMALE
     Dosage: ?          OTHER STRENGTH:120 MG/1.7ML;OTHER DOSE:120 MG/1.7ML;OTHER FREQUENCY:1.7ML EVERY 4 WEEK;?
     Route: 058
     Dates: start: 20191113

REACTIONS (4)
  - Rash [None]
  - Acne [None]
  - Therapy cessation [None]
  - Multiple allergies [None]

NARRATIVE: CASE EVENT DATE: 20200317
